FAERS Safety Report 21230494 (Version 6)
Quarter: 2023Q2

REPORT INFORMATION
  Report Type: Report from Study
  Country: US (occurrence: US)
  Receive Date: 20220818
  Receipt Date: 20230622
  Transmission Date: 20230721
  Serious: Yes (Death, Other)
  Sender: FDA-Public Use
  Company Number: US-ACADIA PHARMACEUTICALS INC.-ACA-2022-PIM-002544

PATIENT
  Age: 75 Year
  Sex: Male

DRUGS (11)
  1. NUPLAZID [Suspect]
     Active Substance: PIMAVANSERIN TARTRATE
     Indication: Parkinson^s disease psychosis
     Dosage: 34 MILLIGRAM, QD
     Route: 048
     Dates: start: 20220713, end: 20220725
  2. NUPLAZID [Suspect]
     Active Substance: PIMAVANSERIN TARTRATE
     Dosage: 34 MILLIGRAM, QD
     Route: 048
     Dates: start: 20221010
  3. TROSPIUM [Concomitant]
     Active Substance: TROSPIUM
  4. MIRALAX [Concomitant]
     Active Substance: POLYETHYLENE GLYCOL 3350
  5. VITAMINS NOS [Concomitant]
     Active Substance: VITAMINS
  6. RYTARY [Concomitant]
     Active Substance: CARBIDOPA\LEVODOPA
  7. QUETIAPINE [Concomitant]
     Active Substance: QUETIAPINE
  8. RIMANTADINE [Concomitant]
     Active Substance: RIMANTADINE HYDROCHLORIDE
  9. PRAMIPEXOLE [Concomitant]
     Active Substance: PRAMIPEXOLE
  10. MIRTAZAPINE [Concomitant]
     Active Substance: MIRTAZAPINE
  11. OMEPRAZOLE [Concomitant]
     Active Substance: OMEPRAZOLE

REACTIONS (7)
  - Parkinson^s disease [Fatal]
  - Spinal fracture [Unknown]
  - Disease progression [Not Recovered/Not Resolved]
  - Delusion [Not Recovered/Not Resolved]
  - Fall [Unknown]
  - Drug ineffective [Not Recovered/Not Resolved]
  - Hallucination [Recovered/Resolved]

NARRATIVE: CASE EVENT DATE: 20220701
